FAERS Safety Report 14740669 (Version 1)
Quarter: 2018Q2

REPORT INFORMATION
  Report Type: Spontaneous
  Country: US (occurrence: US)
  Receive Date: 20180410
  Receipt Date: 20180410
  Transmission Date: 20180711
  Serious: No
  Sender: FDA-Public Use
  Company Number: US-ASTRAZENECA-2018SE36695

PATIENT
  Sex: Male
  Weight: 83.9 kg

DRUGS (1)
  1. RHINOCORT ALLERGY [Suspect]
     Active Substance: BUDESONIDE
     Indication: GASTROINTESTINAL DISORDER
     Route: 045
     Dates: start: 201705

REACTIONS (4)
  - Intentional product misuse [Unknown]
  - Euphoric mood [Unknown]
  - Product use issue [Unknown]
  - Off label use [Unknown]
